FAERS Safety Report 7170702-5 (Version None)
Quarter: 2010Q4

REPORT INFORMATION
  Report Type: 
  Country: None (occurrence: None)
  Receive Date: 20101217
  Receipt Date: 20101215
  Transmission Date: 20110411
  Serious: Yes (Other)
  Sender: FDA-Public Use
  Company Number: US-PFIZER INC-2010173242

PATIENT
  Sex: Male
  Weight: 65.3 kg

DRUGS (13)
  1. NORVASC [Suspect]
     Indication: HYPERTENSION
     Dosage: UNK
     Route: 048
  2. COZAAR [Concomitant]
     Indication: HYPERTENSION
     Dosage: UNK
  3. INSPRA [Concomitant]
     Indication: HYPERTENSION
     Dosage: UNK
  4. LASIX [Concomitant]
     Indication: HYPERTENSION
     Dosage: UNK
  5. ACETYLSALICYLIC ACID [Concomitant]
     Indication: ANTICOAGULANT THERAPY
     Dosage: UNK
  6. RANEXA [Concomitant]
     Indication: ANGINA PECTORIS
     Dosage: UNK
  7. COREG [Concomitant]
     Indication: HYPERTENSION
     Dosage: UNK
  8. ZOCOR [Concomitant]
     Indication: BLOOD CHOLESTEROL INCREASED
     Dosage: UNK
  9. NITROGLYCERIN [Concomitant]
     Indication: ANGINA PECTORIS
     Dosage: UNK, AS NEEDED
  10. COUMADIN [Concomitant]
     Dosage: UNK
  11. CALCIUM [Concomitant]
     Dosage: UNK
  12. SELENIUM [Concomitant]
     Dosage: UNK
  13. MULTI-VITAMINS [Concomitant]
     Dosage: UNK

REACTIONS (8)
  - ATRIAL FLUTTER [None]
  - BENIGN PROSTATIC HYPERPLASIA [None]
  - BLOOD CALCIUM DECREASED [None]
  - CARDIAC MURMUR [None]
  - GINGIVAL HYPERPLASIA [None]
  - HAEMOGLOBIN DECREASED [None]
  - MACULAR DEGENERATION [None]
  - PLATELET COUNT DECREASED [None]
